FAERS Safety Report 5100579-0 (Version None)
Quarter: 2006Q3

REPORT INFORMATION
  Report Type: 
  Country: None (occurrence: None)
  Receive Date: 20060909
  Receipt Date: 20030605
  Transmission Date: 20061208
  Serious: Yes (Hospitalization, Other)
  Sender: FDA-Public Use
  Company Number: US-ABBOTT-03P-163-0220669-00

PATIENT
  Sex: Male

DRUGS (19)
  1. RITONAVIR SOFT GELATIN CAPSULES [Suspect]
     Indication: HIV INFECTION
     Route: 048
     Dates: start: 20030415
  2. RITONAVIR SOFT GELATIN CAPSULES [Suspect]
     Route: 048
     Dates: start: 20030401, end: 20030530
  3. TENOFOVIR [Concomitant]
     Indication: HIV INFECTION
     Dates: start: 20020708
  4. ZIDOVUDINE [Concomitant]
     Indication: HIV INFECTION
     Dates: start: 20000119
  5. LAMIVUDINE [Concomitant]
     Indication: HIV INFECTION
     Dates: start: 20000119
  6. ABACAVIR [Concomitant]
     Indication: HIV INFECTION
     Dates: start: 20000119
  7. RANITIDINE [Concomitant]
     Indication: GASTROOESOPHAGEAL REFLUX DISEASE
     Route: 048
     Dates: start: 20020201
  8. OLANZAPINE [Concomitant]
     Indication: SCHIZOPHRENIA
     Route: 048
     Dates: start: 19980915
  9. AMITRIPTILINE [Concomitant]
     Indication: DEPRESSION
     Route: 048
     Dates: start: 19991005
  10. BENAZEPRIL HYDROCHLORIDE [Concomitant]
     Indication: HYPERTENSION
     Route: 048
     Dates: start: 19970101
  11. FENOFIBRATE [Concomitant]
     Indication: HYPERTRIGLYCERIDAEMIA
     Route: 048
     Dates: start: 20020801
  12. VALACYCLOVIR HCL [Concomitant]
     Indication: HERPES VIRUS INFECTION
     Route: 048
     Dates: start: 20020201
  13. B-KOMPLEX ^LECIVA^ [Concomitant]
     Indication: BLOOD LACTIC ACID INCREASED
     Route: 048
     Dates: start: 20020305
  14. GLYCOPYRRONIUM BROMIDE [Concomitant]
     Indication: ABDOMINAL PAIN
     Route: 048
     Dates: start: 20020730
  15. PHENERGAN HCL [Concomitant]
     Indication: NAUSEA
     Route: 048
     Dates: start: 20021009
  16. MAGNESIUM CHLORIDE ANHYDROUS [Concomitant]
     Indication: BLOOD MAGNESIUM DECREASED
     Route: 048
     Dates: start: 20021024
  17. LOMOTIL [Concomitant]
     Indication: DIARRHOEA
     Route: 048
     Dates: start: 19990301
  18. TIPRANAVIR [Concomitant]
     Indication: HIV INFECTION
     Route: 048
     Dates: start: 20030415
  19. TIPRANAVIR [Concomitant]
     Route: 048
     Dates: start: 20030401, end: 20030530

REACTIONS (2)
  - BLOOD CREATININE INCREASED [None]
  - NEPHROTIC SYNDROME [None]
